FAERS Safety Report 14390423 (Version 2)
Quarter: 2018Q1

REPORT INFORMATION
  Report Type: Spontaneous
  Country: US (occurrence: US)
  Receive Date: 20180116
  Receipt Date: 20180116
  Transmission Date: 20180509
  Serious: Yes (Death, Hospitalization, Other)
  Sender: FDA-Public Use
  Company Number: US-ENDO PHARMACEUTICALS INC-2018-013273

PATIENT
  Age: 28 Year
  Sex: Male

DRUGS (1)
  1. RHEUMATREX [Suspect]
     Active Substance: METHOTREXATE SODIUM
     Indication: PRODUCT USED FOR UNKNOWN INDICATION
     Dosage: 10 MG, DAILY
     Route: 048

REACTIONS (9)
  - Mouth haemorrhage [Unknown]
  - Atrial fibrillation [Unknown]
  - Pain [Unknown]
  - Hypernatraemia [Unknown]
  - Pruritus [Unknown]
  - Pulmonary oedema [Unknown]
  - Rash vesicular [Unknown]
  - Atrioventricular block first degree [Unknown]
  - Medication error [Fatal]
